FAERS Safety Report 19880936 (Version 1)
Quarter: 2021Q3

REPORT INFORMATION
  Report Type: Other
  Country: IT (occurrence: IT)
  Receive Date: 20210924
  Receipt Date: 20210924
  Transmission Date: 20211014
  Serious: Yes (Other)
  Sender: FDA-Public Use
  Company Number: IT-ROCHE-2912888

PATIENT

DRUGS (1)
  1. TOCILIZUMAB. [Suspect]
     Active Substance: TOCILIZUMAB
     Indication: COVID-19 PNEUMONIA
     Route: 065

REACTIONS (7)
  - Neutropenia [Recovered/Resolved]
  - Candida infection [Unknown]
  - Off label use [Unknown]
  - Aspergillus infection [Unknown]
  - Clostridium difficile infection [Unknown]
  - Transaminases increased [Recovered/Resolved]
  - Infection [Unknown]
